FAERS Safety Report 8253651-0 (Version None)
Quarter: 2012Q2

REPORT INFORMATION
  Report Type: 
  Country: None (occurrence: None)
  Receive Date: 20120402
  Receipt Date: 20120312
  Transmission Date: 20120825
  Serious: No
  Sender: FDA-Public Use
  Company Number: US-AMGEN-USASP2012016027

PATIENT
  Age: 54 Year
  Sex: Male

DRUGS (3)
  1. ENBREL [Suspect]
     Indication: RHEUMATOID ARTHRITIS
     Dosage: 50 MG, QWK
     Dates: start: 20111201
  2. ENBREL [Suspect]
     Indication: PSORIATIC ARTHROPATHY
  3. AZULFIDINE [Concomitant]
     Dosage: 1 MG, UNK
     Dates: start: 20090101

REACTIONS (2)
  - AMNESIA [None]
  - DRUG INEFFECTIVE [None]
